FAERS Safety Report 21539167 (Version 1)
Quarter: 2022Q4

REPORT INFORMATION
  Report Type: Report from Study
  Country: US (occurrence: US)
  Receive Date: 20221102
  Receipt Date: 20221102
  Transmission Date: 20230113
  Serious: No
  Sender: FDA-Public Use
  Company Number: US-NOVARTISTESTPH-NVSC2022US242337

PATIENT
  Age: 55 Year
  Sex: Male

DRUGS (1)
  1. KESIMPTA [Suspect]
     Active Substance: OFATUMUMAB
     Indication: Multiple sclerosis
     Dosage: 20 MG
     Route: 058
     Dates: start: 20221026, end: 20221026

REACTIONS (5)
  - Musculoskeletal stiffness [Unknown]
  - Gait disturbance [Unknown]
  - Chest pain [Unknown]
  - Dysuria [Unknown]
  - Chills [Unknown]

NARRATIVE: CASE EVENT DATE: 20221026
